FAERS Safety Report 15811639 (Version 1)
Quarter: 2019Q1

REPORT INFORMATION
  Report Type: Spontaneous
  Country: US (occurrence: US)
  Receive Date: 20190111
  Receipt Date: 20190111
  Transmission Date: 20190417
  Serious: No
  Sender: FDA-Public Use
  Company Number: US-PFIZER INC-2019014969

PATIENT
  Age: 58 Year

DRUGS (2)
  1. FLAGYL [Suspect]
     Active Substance: METRONIDAZOLE\METRONIDAZOLE HYDROCHLORIDE
     Dosage: UNK
  2. CIPROFIBRATE [Suspect]
     Active Substance: CIPROFIBRATE
     Dosage: UNK

REACTIONS (1)
  - Drug hypersensitivity [Unknown]
